FAERS Safety Report 24037369 (Version 1)
Quarter: 2024Q3

REPORT INFORMATION
  Report Type: Spontaneous
  Country: MY (occurrence: MY)
  Receive Date: 20240702
  Receipt Date: 20240702
  Transmission Date: 20241017
  Serious: Yes (Other)
  Sender: ABBVIE
  Company Number: MY-PFIZER INC-202400200300

PATIENT
  Age: 33 Year
  Sex: Female

DRUGS (1)
  1. CEFTAROLINE FOSAMIL [Suspect]
     Active Substance: CEFTAROLINE FOSAMIL
     Indication: Antibiotic therapy
     Dosage: 600 MG
     Route: 042

REACTIONS (1)
  - Rash pruritic [Recovering/Resolving]
